FAERS Safety Report 6635198-8 (Version None)
Quarter: 2010Q1

REPORT INFORMATION
  Report Type: 
  Country: None (occurrence: None)
  Receive Date: 20100315
  Receipt Date: 20100312
  Transmission Date: 20100710
  Serious: Yes (Death, Hospitalization, Other)
  Sender: FDA-Public Use
  Company Number: PHHY2010BR14943

PATIENT
  Sex: Female

DRUGS (1)
  1. DIOVAN HCT [Suspect]
     Indication: HYPERTENSION
     Dosage: 1 TABLET DAILY (80/12.5 MG)
     Route: 048

REACTIONS (9)
  - BLOOD PRESSURE DECREASED [None]
  - BREAST CANCER [None]
  - DEATH [None]
  - DIARRHOEA [None]
  - HEPATIC NEOPLASM [None]
  - METASTASIS [None]
  - MUCOSAL INFLAMMATION [None]
  - OEDEMA PERIPHERAL [None]
  - STOMATITIS [None]
